FAERS Safety Report 17616420 (Version 1)
Quarter: 2020Q2

REPORT INFORMATION
  Report Type: Report from Study
  Country: MX (occurrence: MX)
  Receive Date: 20200402
  Receipt Date: 20200402
  Transmission Date: 20200713
  Serious: Yes (Other)
  Sender: FDA-Public Use
  Company Number: MX-UCBSA-2020013211

PATIENT
  Age: 14 Year
  Sex: Male
  Weight: 60 kg

DRUGS (4)
  1. BRIVIACT [Suspect]
     Active Substance: BRIVARACETAM
     Indication: EPILEPSY
     Dosage: UNK
     Route: 048
  2. LACOSAMIDE. [Suspect]
     Active Substance: LACOSAMIDE
     Indication: EPILEPSY
     Dosage: 100 MG, 1.5 DOSAGE FORM, ONCE DAILY (QD)
     Route: 048
     Dates: start: 202002, end: 2020
  3. LACOSAMIDE. [Suspect]
     Active Substance: LACOSAMIDE
     Dosage: 0.5 TABLET IN THE MORNING AND 0.75 TABLET AT NIGHT
     Route: 048
     Dates: start: 2020
  4. BRIVIACT [Suspect]
     Active Substance: BRIVARACETAM
     Dosage: 100 MG, 2.5 DOSAGE FORM, 2X/DAY (BID)
     Route: 048
     Dates: start: 202002

REACTIONS (4)
  - Coma [Unknown]
  - Off label use [Unknown]
  - Cardiac arrest [Unknown]
  - Seizure [Recovered/Resolved]

NARRATIVE: CASE EVENT DATE: 202002
